FAERS Safety Report 7472379-8 (Version None)
Quarter: 2011Q2

REPORT INFORMATION
  Report Type: 
  Country: None (occurrence: None)
  Receive Date: 20110511
  Receipt Date: 20110504
  Transmission Date: 20111010
  Serious: Yes (Hospitalization)
  Sender: FDA-Public Use
  Company Number: PHFR2011GB02753

PATIENT
  Sex: Female

DRUGS (2)
  1. CLOZARIL [Suspect]
     Indication: SCHIZOPHRENIA
     Route: 048
     Dates: start: 20110329
  2. WARFARIN [Concomitant]
     Dosage: UNK DF, UNK

REACTIONS (3)
  - RESPIRATORY DISORDER [None]
  - ASTHMA [None]
  - PULMONARY EMBOLISM [None]
